FAERS Safety Report 5474523-0 (Version None)
Quarter: 2007Q4

REPORT INFORMATION
  Report Type: 
  Country: None (occurrence: None)
  Receive Date: 20071002
  Receipt Date: 20070921
  Transmission Date: 20080405
  Serious: Yes (Other)
  Sender: FDA-Public Use
  Company Number: US-JNJFOC-20070704242

PATIENT
  Sex: Female

DRUGS (25)
  1. REMICADE [Suspect]
     Route: 042
  2. REMICADE [Suspect]
     Route: 042
  3. REMICADE [Suspect]
     Indication: RHEUMATOID ARTHRITIS
     Route: 042
  4. ENBREL [Concomitant]
     Route: 050
  5. METHOTREXATE [Concomitant]
  6. LIPITOR [Concomitant]
  7. FOLIC ACID [Concomitant]
  8. AMBIEN [Concomitant]
  9. VICOPROFEN [Concomitant]
     Dosage: 7.5/200 MG PRN
  10. K-DUR 10 [Concomitant]
  11. METAMUCIL [Concomitant]
     Dosage: TBSO QD
  12. MOTRIN [Concomitant]
     Dosage: 2 TID PRN
  13. PREDNISONE [Concomitant]
     Dosage: 3 TWICE DAILY; ON HOLD
  14. FOSAMAX [Concomitant]
     Dosage: 70/2800
  15. AVAPRO [Concomitant]
  16. HYDROCHLOROTHIAZIDE [Concomitant]
     Dosage: ONE TWICE DAILY
  17. ACIPHEX [Concomitant]
  18. FLONASE [Concomitant]
     Dosage: ON HOLD
     Route: 055
  19. ALBUTEROL [Concomitant]
     Dosage: ON HOLD
     Route: 055
  20. AZMACORT [Concomitant]
     Indication: HYPERSENSITIVITY
     Dosage: ON HOLD
     Route: 055
  21. DIFLUCAN [Concomitant]
     Indication: ORAL FUNGAL INFECTION
     Dosage: QD; ON HOLD
  22. EPIPEN [Concomitant]
     Indication: FOOD ALLERGY
     Dosage: ON HOLD
  23. ANTIHISTAMINE [Concomitant]
     Indication: SEASONAL ALLERGY
     Dosage: ON HOLD
  24. ASCORBIC ACID [Concomitant]
     Dosage: ON HOLD
  25. LEUCOVOR [Concomitant]

REACTIONS (5)
  - ARTHRALGIA [None]
  - DRUG HYPERSENSITIVITY [None]
  - FATIGUE [None]
  - MALAISE [None]
  - MUSCULOSKELETAL STIFFNESS [None]
